FAERS Safety Report 19681183 (Version 1)
Quarter: 2021Q3

REPORT INFORMATION
  Report Type: Spontaneous
  Country: US (occurrence: US)
  Receive Date: 20210810
  Receipt Date: 20210810
  Transmission Date: 20211014
  Serious: No
  Sender: FDA-Public Use
  Company Number: US-GW PHARMA-202108USGW03809

PATIENT

DRUGS (2)
  1. EPIDIOLEX [Suspect]
     Active Substance: CANNABIDIOL
     Indication: SEIZURE
     Dosage: 170 MILLIGRAM, BID
     Route: 048
     Dates: start: 20210720, end: 20210727
  2. EPIDIOLEX [Suspect]
     Active Substance: CANNABIDIOL
     Dosage: 340 MILLIGRAM, BID (INCREASED DOSE)
     Route: 048
     Dates: start: 20210728, end: 2021

REACTIONS (3)
  - Pruritus [Recovered/Resolved]
  - Burning sensation [Recovered/Resolved]
  - Rash [Recovered/Resolved]

NARRATIVE: CASE EVENT DATE: 20210723
